FAERS Safety Report 6596917-2 (Version None)
Quarter: 2010Q1

REPORT INFORMATION
  Report Type: 
  Country: None (occurrence: None)
  Receive Date: 20100222
  Receipt Date: 20100222
  Transmission Date: 20100710
  Serious: Yes (Other)
  Sender: FDA-Public Use
  Company Number: None

PATIENT
  Sex: Male
  Weight: 88.4514 kg

DRUGS (5)
  1. CITALOPRAM HYDROBROMIDE [Suspect]
     Indication: GENERALISED ANXIETY DISORDER
     Dosage: 1-1/2 40MG TOTAL DAILY PO, MID 2007 - TODAY
     Route: 048
  2. CITALOPRAM HYDROBROMIDE [Suspect]
     Indication: OBSESSIVE-COMPULSIVE DISORDER
     Dosage: 1-1/2 40MG TOTAL DAILY PO, MID 2007 - TODAY
     Route: 048
  3. WELLBUTRIN SR [Concomitant]
  4. DIURETIC [Concomitant]
  5. CONCERTA [Suspect]

REACTIONS (3)
  - ANORGASMIA [None]
  - EJACULATION FAILURE [None]
  - ERECTILE DYSFUNCTION [None]
